FAERS Safety Report 8193777-3 (Version None)
Quarter: 2012Q1

REPORT INFORMATION
  Report Type: 
  Country: None (occurrence: None)
  Receive Date: 20120308
  Receipt Date: 20120222
  Transmission Date: 20120608
  Serious: Yes (Hospitalization, Other)
  Sender: FDA-Public Use
  Company Number: US-WATSON-2012-03210

PATIENT
  Age: 45 Year
  Sex: Female

DRUGS (2)
  1. METRONIDAZOLE [Suspect]
     Dosage: 750 MG, TID
     Route: 065
  2. METRONIDAZOLE [Suspect]
     Indication: BLASTOCYSTIS INFECTION
     Dosage: 250 MG, TID
     Route: 065

REACTIONS (14)
  - NEUROPATHY PERIPHERAL [None]
  - NAUSEA [None]
  - CONFUSIONAL STATE [None]
  - VOMITING [None]
  - TINNITUS [None]
  - TOXICITY TO VARIOUS AGENTS [None]
  - GAIT DISTURBANCE [None]
  - TOXIC ENCEPHALOPATHY [None]
  - DIZZINESS [None]
  - DEAFNESS [None]
  - VERTIGO [None]
  - NUCLEAR MAGNETIC RESONANCE IMAGING BRAIN ABNORMAL [None]
  - DYSARTHRIA [None]
  - PAIN IN EXTREMITY [None]
